FAERS Safety Report 12487079 (Version 4)
Quarter: 2016Q4

REPORT INFORMATION
  Report Type: Spontaneous
  Country: US (occurrence: US)
  Receive Date: 20160622
  Receipt Date: 20161103
  Transmission Date: 20170207
  Serious: Yes (Hospitalization, Other)
  Sender: FDA-Public Use
  Company Number: US-RELYPSA-RLY2016001029

PATIENT
  Age: 68 Year
  Sex: Female

DRUGS (21)
  1. ASPIRIN. [Concomitant]
     Active Substance: ASPIRIN
  2. ATORVASTATIN CALCIUM. [Concomitant]
     Active Substance: ATORVASTATIN CALCIUM
  3. MULTIVITAMINS [Concomitant]
     Active Substance: VITAMINS
  4. BUMETANIDE. [Concomitant]
     Active Substance: BUMETANIDE
  5. OMEGA 3 [Concomitant]
     Active Substance: OMEGA-3 FATTY ACIDS
  6. SYMBICORT [Concomitant]
     Active Substance: BUDESONIDE\FORMOTEROL FUMARATE DIHYDRATE
  7. VITAMIN D3 [Concomitant]
     Active Substance: CHOLECALCIFEROL
  8. GABAPENTIN. [Concomitant]
     Active Substance: GABAPENTIN
  9. CLOPIDOGREL BISULFATE. [Concomitant]
     Active Substance: CLOPIDOGREL BISULFATE
  10. HUMALOG [Concomitant]
     Active Substance: INSULIN LISPRO
  11. RENVELA [Concomitant]
     Active Substance: SEVELAMER CARBONATE
  12. REQUIP [Concomitant]
     Active Substance: ROPINIROLE HYDROCHLORIDE
  13. LYRICA [Concomitant]
     Active Substance: PREGABALIN
  14. MIDODRINE HCL [Concomitant]
     Active Substance: MIDODRINE HYDROCHLORIDE
  15. OXYCODONE W/APAP [Concomitant]
     Active Substance: ACETAMINOPHEN\OXYCODONE HYDROCHLORIDE
  16. IRBESARTAN. [Concomitant]
     Active Substance: IRBESARTAN
  17. METOLAZONE. [Concomitant]
     Active Substance: METOLAZONE
  18. ONDANSETRON HCL [Concomitant]
     Active Substance: ONDANSETRON HYDROCHLORIDE
  19. LANTUS [Concomitant]
     Active Substance: INSULIN GLARGINE
  20. VELTASSA [Suspect]
     Active Substance: PATIROMER
     Indication: HYPERKALAEMIA
     Dosage: 8.4 G, QD
     Route: 048
     Dates: start: 20160430, end: 2016
  21. ZETIA [Concomitant]
     Active Substance: EZETIMIBE

REACTIONS (3)
  - Lower limb fracture [Unknown]
  - Urinary tract infection [Unknown]
  - Fall [Unknown]

NARRATIVE: CASE EVENT DATE: 20160610
